FAERS Safety Report 9294823 (Version 3)
Quarter: 2013Q2

REPORT INFORMATION
  Report Type: Spontaneous
  Country: US (occurrence: US)
  Receive Date: 20130517
  Receipt Date: 20130610
  Transmission Date: 20140414
  Serious: No
  Sender: FDA-Public Use
  Company Number: US-PFIZER INC-2013149198

PATIENT
  Age: 80 Year
  Sex: Male
  Weight: 74.83 kg

DRUGS (6)
  1. NORVASC [Suspect]
     Indication: HYPERTENSION
     Dosage: UNK
     Route: 048
     Dates: start: 201302, end: 201304
  2. EDARBI [Suspect]
     Indication: HYPERTENSION
     Dosage: 40 MG, 1X/DAY
     Route: 048
     Dates: start: 201301
  3. DEXLANSOPRAZOLE [Suspect]
     Dosage: UNK
  4. XANAX [Concomitant]
     Indication: RELAXATION THERAPY
     Dosage: 1 DF, DAILY
     Route: 048
     Dates: start: 201301, end: 201304
  5. VITAMIN C [Concomitant]
     Indication: NUTRITIONAL SUPPLEMENTATION
     Dosage: UNK
  6. VITAMIN D [Concomitant]
     Indication: NUTRITIONAL SUPPLEMENTATION
     Dosage: UNK

REACTIONS (2)
  - Fatigue [Not Recovered/Not Resolved]
  - Feeling abnormal [Unknown]
